FAERS Safety Report 9988182 (Version 1)
Quarter: 2014Q1

REPORT INFORMATION
  Report Type: Spontaneous
  Country: US (occurrence: US)
  Receive Date: 20140309
  Receipt Date: 20140309
  Transmission Date: 20141002
  Serious: No
  Sender: FDA-Public Use
  Company Number: US-009507513-1403USA001705

PATIENT
  Age: 61 Year
  Sex: Female

DRUGS (2)
  1. HEXADROL TABLETS [Suspect]
     Dosage: 4 MG, QID
     Route: 048
     Dates: start: 20120416
  2. HEXADROL TABLETS [Suspect]
     Dosage: 2 DF, QD
     Route: 048

REACTIONS (4)
  - Flushing [Recovered/Resolved]
  - Erythema [Unknown]
  - Feeling hot [Unknown]
  - Adverse event [Unknown]
